FAERS Safety Report 11140750 (Version 1)
Quarter: 2015Q2

REPORT INFORMATION
  Report Type: Spontaneous
  Country: US (occurrence: None)
  Receive Date: 20150526
  Receipt Date: 20150526
  Transmission Date: 20150821
  Serious: Yes (Hospitalization)
  Sender: FDA-Public Use
  Company Number: None

PATIENT
  Age: 59 Year
  Sex: Female
  Weight: 64.41 kg

DRUGS (16)
  1. FERRLECIT [Suspect]
     Active Substance: SODIUM FERRIC GLUCONATE COMPLEX
     Indication: ANAEMIA
     Dosage: ONE DOSE
     Dates: start: 20150511, end: 20150511
  2. GUMMY FIBER BEARS [Concomitant]
  3. RAPRAMARAZOLE [Concomitant]
  4. SYNTHROID [Concomitant]
     Active Substance: LEVOTHYROXINE SODIUM
  5. RESTASIS [Concomitant]
     Active Substance: CYCLOSPORINE
  6. VIT. D3 [Concomitant]
  7. TYLENOL [Concomitant]
     Active Substance: ACETAMINOPHEN
  8. CALTRATE [Concomitant]
     Active Substance: CALCIUM CARBONATE
  9. MILK OF MAGNESIA [Concomitant]
     Active Substance: MAGNESIUM HYDROXIDE
  10. FACIAL METROGEL [Concomitant]
  11. VITAMIN B12 [Concomitant]
     Active Substance: CYANOCOBALAMIN
  12. PROBIOTICS [Concomitant]
     Active Substance: PROBIOTICS NOS
  13. VALACYCLOVIR [Concomitant]
     Active Substance: VALACYCLOVIR HYDROCHLORIDE
  14. KRILL OIL [Concomitant]
     Active Substance: DIETARY SUPPLEMENT
  15. DIAZAPAM 10 MG GEL [Concomitant]
     Active Substance: DIAZEPAM
  16. VITAMIN SUPPLEMENT [Concomitant]
     Active Substance: VITAMINS

REACTIONS (15)
  - Refusal of treatment by patient [None]
  - Lethargy [None]
  - Feeling abnormal [None]
  - Pharyngeal disorder [None]
  - Loss of consciousness [None]
  - Dyspnoea [None]
  - Headache [None]
  - Fatigue [None]
  - Limb discomfort [None]
  - Hyperhidrosis [None]
  - Blood pressure decreased [None]
  - Pain [None]
  - Communication disorder [None]
  - Poor venous access [None]
  - Movement disorder [None]

NARRATIVE: CASE EVENT DATE: 20150511
